FAERS Safety Report 6824838-6 (Version None)
Quarter: 2010Q3

REPORT INFORMATION
  Report Type: 
  Country: None (occurrence: None)
  Receive Date: 20100708
  Receipt Date: 20070213
  Transmission Date: 20110219
  Serious: No
  Sender: FDA-Public Use
  Company Number: US-PFIZER INC-2007001159

PATIENT
  Sex: Female
  Weight: 86.18 kg

DRUGS (5)
  1. CHANTIX [Suspect]
     Indication: SMOKING CESSATION THERAPY
     Route: 048
     Dates: start: 20061225
  2. KLONOPIN [Concomitant]
     Route: 048
  3. SYNTHROID [Concomitant]
     Route: 048
  4. ATENOLOL [Concomitant]
     Route: 048
  5. PHENTERMINE [Concomitant]
     Route: 048

REACTIONS (7)
  - ABDOMINAL DISCOMFORT [None]
  - ABDOMINAL PAIN UPPER [None]
  - FEELING ABNORMAL [None]
  - HYPERSOMNIA [None]
  - LACRIMATION INCREASED [None]
  - POOR QUALITY SLEEP [None]
  - VOMITING [None]
